FAERS Safety Report 25790279 (Version 1)
Quarter: 2025Q3

REPORT INFORMATION
  Report Type: Other
  Country: IN (occurrence: IN)
  Receive Date: 20250911
  Receipt Date: 20250911
  Transmission Date: 20251020
  Serious: Yes (Disabling, Other)
  Sender: APPCO PHARMA LLC
  Company Number: IN-Appco Pharma LLC-2184275

PATIENT
  Age: 40 Year
  Sex: Male

DRUGS (1)
  1. SERTRALINE [Suspect]
     Active Substance: SERTRALINE HYDROCHLORIDE
     Indication: Obsessive-compulsive disorder

REACTIONS (1)
  - Deafness neurosensory [Recovered/Resolved]
